FAERS Safety Report 5576108-4 (Version None)
Quarter: 2007Q4

REPORT INFORMATION
  Report Type: 
  Country: None (occurrence: None)
  Receive Date: 20071228
  Receipt Date: 20071219
  Transmission Date: 20080405
  Serious: Yes (Hospitalization, Other)
  Sender: FDA-Public Use
  Company Number: FR-NOVOPROD-270248

PATIENT
  Age: 96 Year
  Sex: Female

DRUGS (10)
  1. MIXTARD HUMAN 70/30 [Suspect]
     Indication: TYPE 2 DIABETES MELLITUS
     Dosage: 18 IU, QD
     Route: 058
     Dates: start: 20060401, end: 20071116
  2. MIXTARD HUMAN 70/30 [Suspect]
     Dosage: 8 IU, QD
     Route: 058
     Dates: start: 20071123
  3. TAHOR [Suspect]
     Indication: DYSLIPIDAEMIA
     Dosage: 10 MG, QD
     Route: 048
  4. LASIX [Concomitant]
     Dosage: UNK/UNK
  5. LERCAN [Concomitant]
     Dosage: UNK/UNK
  6. KARDEGIC                           /00002703/ [Concomitant]
     Dosage: UNK/UNK
  7. LEVOTHYROX [Concomitant]
     Dosage: UNK/UNK
  8. KAYEXALATE [Concomitant]
     Dosage: UNK/UNK
  9. ZOPICLONE [Concomitant]
     Dosage: UNK/UNK
  10. TANAKAN                            /01003103/ [Concomitant]

REACTIONS (2)
  - APHASIA [None]
  - HYPOGLYCAEMIA [None]
